FAERS Safety Report 16647045 (Version 1)
Quarter: 2019Q3

REPORT INFORMATION
  Report Type: Spontaneous
  Country: US (occurrence: US)
  Receive Date: 20190617
  Receipt Date: 20190617
  Transmission Date: 20191004
  Serious: No
  Sender: FDA-Public Use
  Company Number: None

PATIENT

DRUGS (2)
  1. PODOFILOX. [Suspect]
     Active Substance: PODOFILOX
     Route: 061
  2. CICLOPIROX. [Suspect]
     Active Substance: CICLOPIROX
     Route: 061

REACTIONS (2)
  - Wrong product administered [None]
  - Product dispensing error [None]
